FAERS Safety Report 6716340-7 (Version None)
Quarter: 2010Q2

REPORT INFORMATION
  Report Type: 
  Country: None (occurrence: None)
  Receive Date: 20100507
  Receipt Date: 20100428
  Transmission Date: 20101027
  Serious: Yes (Hospitalization)
  Sender: FDA-Public Use
  Company Number: US-ASTRAZENECA-2010SE19130

PATIENT
  Age: 51 Year
  Sex: Male

DRUGS (2)
  1. CRESTOR [Suspect]
     Route: 048
     Dates: start: 20100201
  2. LISINOPRIL [Concomitant]

REACTIONS (2)
  - HEPATIC ENZYME INCREASED [None]
  - SHOULDER OPERATION [None]
